FAERS Safety Report 8802599 (Version 2)
Quarter: 2015Q1

REPORT INFORMATION
  Report Type: Report from Study
  Country: US (occurrence: US)
  Receive Date: 20120921
  Receipt Date: 20150320
  Transmission Date: 20150721
  Serious: Yes (Death, Hospitalization)
  Sender: FDA-Public Use
  Company Number: US-ROCHE-1103630

PATIENT
  Sex: Male

DRUGS (21)
  1. RITALIN [Concomitant]
     Active Substance: METHYLPHENIDATE HYDROCHLORIDE
  2. DECADRON [Concomitant]
     Active Substance: DEXAMETHASONE
     Route: 048
  3. HALDOL [Concomitant]
     Active Substance: HALOPERIDOL
     Route: 048
  4. LOVENOX [Concomitant]
     Active Substance: ENOXAPARIN SODIUM
  5. PERCOCET [Concomitant]
     Active Substance: ACETAMINOPHEN\OXYCODONE HYDROCHLORIDE
     Route: 048
  6. ALDACTONE (UNITED STATES) [Concomitant]
     Route: 048
  7. REGLAN [Concomitant]
     Active Substance: METOCLOPRAMIDE HYDROCHLORIDE
     Route: 048
  8. LACTULOSE. [Concomitant]
     Active Substance: LACTULOSE
     Route: 048
  9. MARINOL (UNITED STATES) [Concomitant]
  10. AMBIEN [Concomitant]
     Active Substance: ZOLPIDEM TARTRATE
     Route: 048
  11. ELAVIL [Concomitant]
     Active Substance: AMITRIPTYLINE HYDROCHLORIDE
     Route: 048
  12. AVASTIN [Suspect]
     Active Substance: BEVACIZUMAB
     Indication: INTRAOCULAR MELANOMA
     Route: 065
     Dates: start: 20050717
  13. ALIMTA [Concomitant]
     Active Substance: PEMETREXED DISODIUM
     Route: 065
  14. ZOLOFT [Concomitant]
     Active Substance: SERTRALINE HYDROCHLORIDE
     Route: 048
  15. DIFLUCAN [Concomitant]
     Active Substance: FLUCONAZOLE
     Route: 048
  16. CEFUROXIME. [Concomitant]
     Active Substance: CEFUROXIME
  17. ALIMTA [Concomitant]
     Active Substance: PEMETREXED DISODIUM
     Route: 065
  18. FOLATE [Concomitant]
     Active Substance: FOLATE SODIUM
     Route: 048
  19. AVASTIN [Suspect]
     Active Substance: BEVACIZUMAB
     Indication: OFF LABEL USE
  20. ZOLOFT [Concomitant]
     Active Substance: SERTRALINE HYDROCHLORIDE
     Route: 048
  21. LASIX [Concomitant]
     Active Substance: FUROSEMIDE
     Route: 048

REACTIONS (18)
  - Death [Fatal]
  - Neutropenia [Recovered/Resolved]
  - Pulse volume decreased [Recovered/Resolved]
  - Dehydration [Unknown]
  - Thrombocytopenia [Recovered/Resolved]
  - Failure to thrive [Unknown]
  - Decreased appetite [Unknown]
  - Jaundice [Unknown]
  - Hypophagia [Unknown]
  - Fluid intake reduced [Unknown]
  - Balance disorder [Unknown]
  - Off label use [Unknown]
  - Depression [Unknown]
  - Hiccups [Unknown]
  - Peripheral coldness [Unknown]
  - Insomnia [Unknown]
  - Hepatic failure [Unknown]
  - Dysuria [Unknown]
